FAERS Safety Report 5586209-2 (Version None)
Quarter: 2008Q1

REPORT INFORMATION
  Report Type: 
  Country: None (occurrence: None)
  Receive Date: 20080107
  Receipt Date: 20071226
  Transmission Date: 20080703
  Serious: Yes (Disabling)
  Sender: FDA-Public Use
  Company Number: ALL1-2007-01144

PATIENT
  Age: 8 Year
  Sex: Male
  Weight: 28.1 kg

DRUGS (6)
  1. DAYTRANA [Suspect]
     Indication: ATTENTION DEFICIT/HYPERACTIVITY DISORDER
     Dosage: SEE IMAGE
     Route: 062
     Dates: start: 20070301, end: 20070101
  2. DAYTRANA [Suspect]
     Indication: ATTENTION DEFICIT/HYPERACTIVITY DISORDER
     Dosage: SEE IMAGE
     Route: 062
     Dates: start: 20070105, end: 20070201
  3. DAYTRANA [Suspect]
     Indication: ATTENTION DEFICIT/HYPERACTIVITY DISORDER
     Dosage: SEE IMAGE
     Route: 062
     Dates: start: 20070201, end: 20070301
  4. DAYTRANA [Suspect]
     Indication: ATTENTION DEFICIT/HYPERACTIVITY DISORDER
     Dosage: SEE IMAGE
     Route: 062
     Dates: start: 20070101, end: 20071015
  5. ZOLOFT [Suspect]
     Indication: GENERALISED ANXIETY DISORDER
     Dosage: 50 MG, 1X/DAY; QD, ORAL; 75 MG DAILY, ORAL
     Route: 048
     Dates: start: 20050920, end: 20070801
  6. ZOLOFT [Suspect]
     Indication: GENERALISED ANXIETY DISORDER
     Dosage: 50 MG, 1X/DAY; QD, ORAL; 75 MG DAILY, ORAL
     Route: 048
     Dates: start: 20070101, end: 20071010

REACTIONS (8)
  - APPLICATION SITE ERYTHEMA [None]
  - DECREASED APPETITE [None]
  - DISTURBANCE IN ATTENTION [None]
  - DRUG INEFFECTIVE [None]
  - HUNGER [None]
  - INCREASED APPETITE [None]
  - MANIA [None]
  - PHARMACEUTICAL PRODUCT COMPLAINT [None]
